FAERS Safety Report 8449960-2 (Version None)
Quarter: 2012Q2

REPORT INFORMATION
  Report Type: 
  Country: None (occurrence: None)
  Receive Date: 20120620
  Receipt Date: 20120615
  Transmission Date: 20120825
  Serious: Yes (Death)
  Sender: FDA-Public Use
  Company Number: PHHY2012BR052335

PATIENT
  Age: 76 Year
  Sex: Male

DRUGS (1)
  1. EXELON [Suspect]
     Indication: DEMENTIA ALZHEIMER'S TYPE
     Dosage: 9MG/5CM2
     Route: 062

REACTIONS (2)
  - HAEMORRHAGIC STROKE [None]
  - HYPERTONIC BLADDER [None]
